FAERS Safety Report 6619050-X (Version None)
Quarter: 2010Q1

REPORT INFORMATION
  Report Type: 
  Country: None (occurrence: None)
  Receive Date: 20100308
  Receipt Date: 20100224
  Transmission Date: 20100710
  Serious: Yes (Disabling, Other)
  Sender: FDA-Public Use
  Company Number: BR-PFIZER INC-2010010122

PATIENT
  Age: 63 Year
  Sex: Male
  Weight: 106 kg

DRUGS (5)
  1. DOSTINEX [Suspect]
     Indication: PROLACTINOMA
     Dosage: 1 MG, WEEKLY
     Route: 048
     Dates: start: 20090301
  2. LOPERAMIDE HYDROCHLORIDE [Concomitant]
     Dosage: UNK
  3. ATENOLOL [Concomitant]
     Dosage: 40 MG, UNK
  4. HYDROCHLOROTHIAZIDE [Concomitant]
     Dosage: UNK
  5. NIFEDIPINE [Concomitant]
     Dosage: UNK

REACTIONS (6)
  - CONFUSIONAL STATE [None]
  - CRYING [None]
  - DIARRHOEA [None]
  - HEADACHE [None]
  - HYPOTENSION [None]
  - RECTAL CANCER [None]
